FAERS Safety Report 8803465 (Version 3)
Quarter: 2013Q1

REPORT INFORMATION
  Report Type: Spontaneous
  Country: US (occurrence: US)
  Receive Date: 20120924
  Receipt Date: 20130109
  Transmission Date: 20140127
  Serious: Yes (Hospitalization, Other)
  Sender: FDA-Public Use
  Company Number: GB-ASTRAZENECA-2012SE72332

PATIENT
  Age: 627 Month
  Sex: Female
  Weight: 89.8 kg

DRUGS (25)
  1. ATENOLOL [Suspect]
     Indication: CARDIAC DISORDER
     Route: 048
  2. SYMBICORT [Suspect]
     Indication: ASTHMA
     Dosage: 160/4.5 2 PUFFS BID
     Route: 055
  3. SYMBICORT [Suspect]
     Indication: CHRONIC OBSTRUCTIVE PULMONARY DISEASE
     Dosage: 160/4.5 2 PUFFS BID
     Route: 055
  4. LISINOPRIL [Suspect]
     Indication: HYPERTENSION
     Route: 048
  5. PRILOSEC OTC [Suspect]
     Indication: GASTROOESOPHAGEAL REFLUX DISEASE
     Route: 048
  6. SEROQUEL XR [Suspect]
     Indication: BIPOLAR DISORDER
     Route: 048
  7. SEROQUEL XR [Suspect]
     Indication: AFFECTIVE DISORDER
     Route: 048
  8. SEROQUEL XR [Suspect]
     Indication: DEPRESSION
     Route: 048
  9. SEROQUEL XR [Suspect]
     Indication: BIPOLAR DISORDER
     Route: 048
     Dates: start: 2011, end: 2012
  10. SEROQUEL XR [Suspect]
     Indication: AFFECTIVE DISORDER
     Route: 048
     Dates: start: 2011, end: 2012
  11. SEROQUEL XR [Suspect]
     Indication: DEPRESSION
     Route: 048
     Dates: start: 2011, end: 2012
  12. SEROQUEL XR [Suspect]
     Indication: BIPOLAR DISORDER
     Route: 048
     Dates: start: 2012
  13. SEROQUEL XR [Suspect]
     Indication: AFFECTIVE DISORDER
     Route: 048
     Dates: start: 2012
  14. SEROQUEL XR [Suspect]
     Indication: DEPRESSION
     Route: 048
     Dates: start: 2012
  15. CELEXA [Concomitant]
     Indication: DEPRESSION
     Route: 048
  16. LAMOTRIGINE [Concomitant]
     Indication: DEPRESSION
     Route: 048
  17. GENERIC LASIX [Concomitant]
     Indication: FLUID RETENTION
     Route: 048
     Dates: end: 201208
  18. GENERIC LASIX [Concomitant]
     Indication: FLUID RETENTION
     Route: 048
     Dates: start: 201208
  19. PREDNISONE [Concomitant]
     Indication: DYSPNOEA
     Route: 048
  20. LIPITOR [Concomitant]
     Indication: BLOOD CHOLESTEROL INCREASED
     Route: 048
  21. SPIRIVA [Concomitant]
     Indication: DYSPNOEA
     Route: 055
  22. GENERIC AMARYL [Concomitant]
     Indication: DIABETES MELLITUS
     Route: 048
  23. XANAX [Concomitant]
     Indication: ANXIETY
     Dosage: 1 MG BID PRN
     Route: 048
  24. WARFARIN [Concomitant]
     Indication: ANTICOAGULANT THERAPY
     Dosage: 2.5-5 MG DAILY
     Route: 048
  25. CARAFATE [Concomitant]
     Indication: GASTROOESOPHAGEAL REFLUX DISEASE

REACTIONS (10)
  - Atrial fibrillation [Unknown]
  - Cardiac failure congestive [Unknown]
  - Asthma [Unknown]
  - Insomnia [Unknown]
  - Feeling abnormal [Unknown]
  - Feeling abnormal [None]
  - Chronic obstructive pulmonary disease [Unknown]
  - Off label use [Unknown]
  - Drug dose omission [Unknown]
  - Drug ineffective [Unknown]
